FAERS Safety Report 4591101-6 (Version None)
Quarter: 2005Q1

REPORT INFORMATION
  Report Type: 
  Country: None (occurrence: None)
  Receive Date: 20050218
  Receipt Date: 20050208
  Transmission Date: 20050727
  Serious: Yes (Other)
  Sender: FDA-Public Use
  Company Number: 2005-01-2003

PATIENT
  Age: 61 Year
  Sex: Male
  Weight: 68 kg

DRUGS (6)
  1. PEG-INTRON [Suspect]
     Indication: HEPATITIS C
     Dosage: 100 MCG QW SUBCUTANEOUS
     Route: 058
     Dates: start: 20041208
  2. REBETOL [Suspect]
     Indication: HEPATITIS C
     Dosage: 800-600 MG ORAL
     Route: 048
     Dates: start: 20041208, end: 20050129
  3. ALLOPURINOL TAB [Concomitant]
  4. URSO 250 [Concomitant]
  5. ZANTAC [Concomitant]
  6. NEOPHAGEN INJECTABLE [Concomitant]

REACTIONS (3)
  - ANAEMIA [None]
  - IMPAIRED HEALING [None]
  - SUBCUTANEOUS ABSCESS [None]
